FAERS Safety Report 7913842-2 (Version None)
Quarter: 2011Q4

REPORT INFORMATION
  Report Type: 
  Country: None (occurrence: None)
  Receive Date: 20111114
  Receipt Date: 20111114
  Transmission Date: 20120403
  Serious: Yes (Other)
  Sender: FDA-Public Use
  Company Number: None

PATIENT
  Age: 56 Year
  Sex: Female

DRUGS (7)
  1. REVLIMID [Suspect]
     Indication: MULTIPLE MYELOMA
     Dosage: 10MG QD ORALLY
     Route: 048
     Dates: start: 20110501, end: 20110601
  2. ATIVAN [Concomitant]
  3. SEPTRA DS [Concomitant]
  4. NEURONTIN [Concomitant]
  5. ZOVIRAX [Concomitant]
  6. LOMOTIL [Concomitant]
  7. VICODIN [Concomitant]

REACTIONS (4)
  - FATIGUE [None]
  - PAIN [None]
  - PERFORMANCE STATUS DECREASED [None]
  - STEM CELL TRANSPLANT [None]
